FAERS Safety Report 9449351 (Version 1)
Quarter: 2013Q3

REPORT INFORMATION
  Report Type: Spontaneous
  Country: US (occurrence: US)
  Receive Date: 20130808
  Receipt Date: 20130808
  Transmission Date: 20140515
  Serious: No
  Sender: FDA-Public Use
  Company Number: US-009507513-1308USA002809

PATIENT
  Age: 42 Year
  Sex: Female

DRUGS (8)
  1. JANUMET [Suspect]
     Indication: DIABETES MELLITUS
     Dosage: UNK
     Route: 048
     Dates: start: 2010
  2. LEVETIRACETAM [Concomitant]
     Indication: CONVULSION
     Dosage: 2250 MG, QD
  3. OMEPRAZOLE [Concomitant]
     Indication: GASTRIC DISORDER
     Dosage: 40 MG, QD
  4. LOVASTATIN [Concomitant]
     Indication: BLOOD CHOLESTEROL INCREASED
     Dosage: 40 MG, QD
  5. FLUOXETINE [Concomitant]
     Dosage: 10 MG, QD
  6. TRIBENZOR [Concomitant]
     Indication: HYPERTENSION
     Dosage: 40 MG, QD
  7. LEVEMIR [Concomitant]
     Indication: DIABETES MELLITUS
     Dosage: 110 UNITS, QD
  8. INSULIN [Concomitant]
     Dosage: UNK, PRN

REACTIONS (3)
  - Eczema [Not Recovered/Not Resolved]
  - Mass [Not Recovered/Not Resolved]
  - Pruritus [Not Recovered/Not Resolved]
